FAERS Safety Report 6921282-8 (Version None)
Quarter: 2010Q3

REPORT INFORMATION
  Report Type: 
  Country: None (occurrence: None)
  Receive Date: 20100812
  Receipt Date: 20100803
  Transmission Date: 20110219
  Serious: No
  Sender: FDA-Public Use
  Company Number: B0598487A

PATIENT
  Sex: Female
  Weight: 66 kg

DRUGS (2)
  1. TYKERB [Suspect]
     Indication: BREAST CANCER
     Route: 048
     Dates: start: 20090728, end: 20091015
  2. XELODA [Concomitant]
     Route: 048
     Dates: start: 20090713, end: 20091009

REACTIONS (1)
  - HAEMATURIA [None]
